FAERS Safety Report 4650635-6 (Version None)
Quarter: 2005Q2

REPORT INFORMATION
  Report Type: 
  Country: None (occurrence: None)
  Receive Date: 20050429
  Receipt Date: 20050429
  Transmission Date: 20051028
  Serious: Yes (Other)
  Sender: FDA-Public Use
  Company Number: None

PATIENT
  Sex: Female
  Weight: 72.5755 kg

DRUGS (6)
  1. FENTANYL [Suspect]
     Indication: PAIN IN EXTREMITY
     Dosage: 100 MCG 1 Q 72 H
     Dates: start: 20021223
  2. SOMA [Concomitant]
  3. LEXAPRO [Concomitant]
  4. XANAX [Concomitant]
  5. HYTRIN [Concomitant]
  6. VICOPROFEN [Concomitant]

REACTIONS (6)
  - DIARRHOEA [None]
  - MIGRAINE [None]
  - NAUSEA [None]
  - RESTLESSNESS [None]
  - THERAPEUTIC RESPONSE UNEXPECTED WITH DRUG SUBSTITUTION [None]
  - VOMITING [None]
